FAERS Safety Report 24014490 (Version 1)
Quarter: 2024Q2

REPORT INFORMATION
  Report Type: Spontaneous
  Country: BR (occurrence: BR)
  Receive Date: 20240626
  Receipt Date: 20240626
  Transmission Date: 20240716
  Serious: Yes (Hospitalization, Other)
  Sender: FDA-Public Use
  Company Number: BR-PHATHOM PHARMACEUTICALS INC.-2024PHT00474

PATIENT
  Sex: Male
  Weight: 76 kg

DRUGS (7)
  1. VONOPRAZAN FUMARATE [Suspect]
     Active Substance: VONOPRAZAN FUMARATE
     Indication: Gastritis
     Dosage: 1 DOSAGE FORM, 1X/DAY
     Route: 048
  2. BENICAR [Concomitant]
     Active Substance: OLMESARTAN MEDOXOMIL
     Dosage: UNK
  3. HYDROCHLOROTHIAZIDE [Concomitant]
     Active Substance: HYDROCHLOROTHIAZIDE
     Dosage: UNK
  4. EUTHYROX [Concomitant]
     Active Substance: LEVOTHYROXINE SODIUM
     Dosage: UNK
  5. GLICLAZIDE [Concomitant]
     Active Substance: GLICLAZIDE
     Dosage: UNK
  6. GLIMEPIRIDE [Concomitant]
     Active Substance: GLIMEPIRIDE
     Dosage: UNK
  7. INSULIN NOS [Concomitant]
     Active Substance: INSULIN NOS
     Dosage: UNK

REACTIONS (18)
  - Musculoskeletal discomfort [Unknown]
  - Diverticulitis [Unknown]
  - Urinary tract disorder [Unknown]
  - Duodenal ulcer [Unknown]
  - Off label use [Unknown]
  - Gastritis [Unknown]
  - Memory impairment [Unknown]
  - Malaise [Unknown]
  - Abdominal pain upper [Unknown]
  - Abdominal pain [Unknown]
  - Gastrointestinal pain [Unknown]
  - Dysuria [Unknown]
  - Arthralgia [Unknown]
  - Pain [Unknown]
  - Weight decreased [Unknown]
  - Gastrooesophageal reflux disease [Unknown]
  - Oesophagitis [Unknown]
  - Drug ineffective for unapproved indication [Unknown]
